FAERS Safety Report 4693834-X (Version None)
Quarter: 2005Q2

REPORT INFORMATION
  Report Type: 
  Country: None (occurrence: None)
  Receive Date: 20050616
  Receipt Date: 20050606
  Transmission Date: 20051028
  Serious: Yes (Hospitalization, Other)
  Sender: FDA-Public Use
  Company Number: 2005064105

PATIENT
  Age: 64 Year
  Sex: Male

DRUGS (6)
  1. CARDURA XL [Suspect]
     Indication: DYSURIA
     Dosage: ORAL
     Route: 048
     Dates: start: 20000101
  2. CAPOTEN [Concomitant]
  3. SUSTRATE (PROPATYLNITRATE) [Concomitant]
  4. SOMALGIN (ACETYLSALICYLIC ACID, ALUMINIUM GLYCINATE, MAGNESIUM CARBONA [Concomitant]
  5. PLAVIX [Concomitant]
  6. LIPITOR [Concomitant]

REACTIONS (3)
  - MYOCARDIAL INFARCTION [None]
  - PROSTATE CANCER [None]
  - STRESS [None]
